FAERS Safety Report 9135308 (Version 2)
Quarter: 2013Q3

REPORT INFORMATION
  Report Type: Spontaneous
  Country: JP (occurrence: JP)
  Receive Date: 20130304
  Receipt Date: 20130805
  Transmission Date: 20140515
  Serious: Yes (Death, Other)
  Sender: FDA-Public Use
  Company Number: JP-ASTELLAS-2013JP002865

PATIENT
  Age: 50 Year
  Sex: Female
  Weight: 45.7 kg

DRUGS (115)
  1. PROGRAF [Suspect]
     Indication: PROPHYLAXIS AGAINST TRANSPLANT REJECTION
     Dosage: 0.5 MG, BID
     Route: 048
     Dates: start: 20110202, end: 20110202
  2. PROGRAF [Suspect]
     Dosage: 1.5 MG, UNKNOWN/D
     Route: 048
     Dates: start: 20110203, end: 20110203
  3. PROGRAF [Suspect]
     Dosage: UNK
     Route: 048
     Dates: start: 20110204, end: 20110210
  4. SOL-MELCORT [Concomitant]
     Indication: PROPHYLAXIS AGAINST TRANSPLANT REJECTION
     Dosage: 40 MG, UID/QD
     Route: 042
     Dates: start: 20110201, end: 20110203
  5. SOL-MELCORT [Concomitant]
     Dosage: 20 MG, UID/QD
     Route: 041
     Dates: start: 20110205, end: 20110207
  6. SOL-MELCORT [Concomitant]
     Dosage: 400 MG, UID/QD
     Route: 042
     Dates: start: 20110207, end: 20110208
  7. SOL-MELCORT [Concomitant]
     Dosage: 900 MG, UNKNOWN/D
     Route: 042
     Dates: start: 20110209, end: 20110209
  8. SOL-MELCORT [Concomitant]
     Dosage: 500 MG, UID/QD
     Route: 041
     Dates: start: 20110210, end: 20110210
  9. CELLCEPT                           /01275102/ [Concomitant]
     Indication: PROPHYLAXIS AGAINST TRANSPLANT REJECTION
     Dosage: 250 MG, BID
     Route: 048
     Dates: start: 20110202, end: 20110203
  10. CELLCEPT                           /01275102/ [Concomitant]
     Dosage: 250 MG, BID
     Route: 048
     Dates: start: 20110204, end: 20110206
  11. DIURETICS [Concomitant]
     Indication: ASCITES
     Route: 065
  12. GLUCOSE [Concomitant]
     Dosage: 2100 ML, UID/QD
     Route: 042
     Dates: start: 20110201, end: 20110201
  13. GLUCOSE [Concomitant]
     Dosage: 2350 ML, UID/QD
     Route: 042
     Dates: start: 20110202, end: 20110202
  14. GLUCOSE [Concomitant]
     Dosage: 2900 ML, UNKNOWN/D
     Route: 042
     Dates: start: 20110203, end: 20110203
  15. GLUCOSE [Concomitant]
     Dosage: 250 ML, UID/QD
     Route: 041
     Dates: start: 20110204, end: 20110206
  16. GLUCOSE [Concomitant]
     Dosage: 500 ML, UID/QD
     Route: 042
     Dates: start: 20110207, end: 20110207
  17. GLUCOSE [Concomitant]
     Dosage: 500 ML, UNKNOWN/D
     Route: 042
     Dates: start: 20110209, end: 20110209
  18. GLUCOSE [Concomitant]
     Dosage: 250 ML, BID
     Route: 041
     Dates: start: 20110209, end: 20110210
  19. GLUCOSE [Concomitant]
     Dosage: 250 ML, UID/QD
     Route: 041
     Dates: start: 20110211, end: 20110211
  20. GLUCOSE [Concomitant]
     Dosage: 250 ML, UID/QD
     Route: 042
     Dates: start: 20110211, end: 20110211
  21. SODIUM CHLORIDE [Concomitant]
     Dosage: 40 ML, UID/QD
     Route: 041
     Dates: start: 20110211, end: 20110211
  22. KCL CORRECTIVE [Concomitant]
     Dosage: 40 ML, BID
     Route: 041
     Dates: start: 20110210, end: 20110210
  23. KCL CORRECTIVE [Concomitant]
     Dosage: 40 ML, UID/QD
     Route: 041
     Dates: start: 20110211, end: 20110211
  24. XYLOCAINE                          /00033402/ [Concomitant]
     Dosage: 20 ML, UID/QD
     Route: 042
     Dates: start: 20110210, end: 20110210
  25. LACTEC                             /00490001/ [Concomitant]
     Dosage: 500 ML, UID/QD
     Route: 042
     Dates: start: 20110210, end: 20110210
  26. FUNGUARD [Concomitant]
     Dosage: 50 MG, UID/QD
     Route: 041
     Dates: start: 20110210, end: 20110211
  27. RECOMODULIN [Concomitant]
     Dosage: 6400 IU, UID/QD
     Route: 041
     Dates: start: 20110210, end: 20110210
  28. SOLDEM 3A [Concomitant]
     Dosage: 1000 ML, UID/QD
     Route: 041
     Dates: start: 20110212, end: 20110212
  29. CALCIUM CHLORIDE [Concomitant]
     Dosage: 40 ML, UID/QD
     Route: 042
     Dates: start: 20110201, end: 20110203
  30. CONCLYTE MG [Concomitant]
     Dosage: UNK
     Route: 042
  31. MAGNESIUM SULFATE [Concomitant]
     Dosage: 20 ML, UID/QD
     Route: 042
     Dates: start: 20110201, end: 20110203
  32. VITAJECT [Concomitant]
     Dosage: 1 DF, UID/QD
     Route: 042
     Dates: start: 20110201, end: 20110203
  33. PANTOL                             /00223901/ [Concomitant]
     Dosage: 1000 MG, UID/QD
     Route: 042
     Dates: start: 20110201, end: 20110203
  34. DIPRIVAN [Concomitant]
     Dosage: 1500 MG, UID/QD
     Route: 042
     Dates: start: 20110201, end: 20110202
  35. DIPRIVAN [Concomitant]
     Dosage: 2000 MG, BID
     Route: 041
     Dates: start: 20110210, end: 20110210
  36. DIPRIVAN [Concomitant]
     Dosage: 2000 MG, UID/QD
     Route: 041
     Dates: start: 20110211, end: 20110211
  37. DEXMEDETOMIDINE HYDROCHLORIDE [Concomitant]
     Dosage: 400 UG, UID/QD
     Route: 042
     Dates: start: 20110201, end: 20110202
  38. DEXMEDETOMIDINE HYDROCHLORIDE [Concomitant]
     Dosage: 200 UG, UID/QD
     Route: 042
     Dates: start: 20110203, end: 20110204
  39. REMINARON [Concomitant]
     Dosage: 1500 MG, UID/QD
     Route: 042
     Dates: start: 20110201, end: 20110201
  40. REMINARON [Concomitant]
     Dosage: 1000 MG, UID/QD
     Route: 042
     Dates: start: 20110202, end: 20110202
  41. REMINARON [Concomitant]
     Dosage: 600 MG, UID/QD
     Route: 042
     Dates: start: 20110203, end: 20110203
  42. SOLITA-T1 [Concomitant]
     Dosage: 500 ML, UID/QD
     Route: 042
     Dates: start: 20110201, end: 20110201
  43. SOLITA-T1 [Concomitant]
     Dosage: 600 ML, UID/QD
     Route: 042
     Dates: start: 20110202, end: 20110202
  44. SOLITA-T1 [Concomitant]
     Dosage: 500 ML, UID/QD
     Route: 042
     Dates: start: 20110203, end: 20110203
  45. INOVAN                             /00360702/ [Concomitant]
     Dosage: 300 MG, UID/QD
     Route: 042
     Dates: start: 20110201, end: 20110203
  46. INOVAN                             /00360702/ [Concomitant]
     Dosage: 300 MG, UID/QD
     Route: 041
     Dates: start: 20110209, end: 20110211
  47. BICARBON [Concomitant]
     Dosage: 2000 ML, UID/QD
     Route: 042
     Dates: start: 20110201, end: 20110202
  48. BICARBON [Concomitant]
     Dosage: 500 ML, UID/QD
     Route: 042
     Dates: start: 20110203, end: 20110204
  49. BICARBON [Concomitant]
     Dosage: 1000 ML, UID/QD
     Route: 042
     Dates: start: 20110205, end: 20110205
  50. BICARBON [Concomitant]
     Dosage: 500 ML, UID/QD
     Route: 041
     Dates: start: 20110207, end: 20110208
  51. BICARBON [Concomitant]
     Dosage: 1000 ML, UID/QD
     Route: 041
     Dates: start: 20110209, end: 20110210
  52. ALBUMINAR [Concomitant]
     Dosage: 2000 ML, UID/QD
     Route: 042
     Dates: start: 20110201, end: 20110202
  53. ALBUMINAR [Concomitant]
     Dosage: 500 ML, UID/QD
     Route: 042
     Dates: start: 20110203, end: 20110204
  54. ALBUMINAR [Concomitant]
     Dosage: 1000 ML, UID/QD
     Route: 042
     Dates: start: 20110205, end: 20110205
  55. ALBUMINAR [Concomitant]
     Dosage: 500 ML, UID/QD
     Route: 041
     Dates: start: 20110207, end: 20110208
  56. ALBUMINAR [Concomitant]
     Dosage: 1000 ML, UID/QD
     Route: 041
     Dates: start: 20110209, end: 20110210
  57. FLUMARIN                           /00963302/ [Concomitant]
     Dosage: 2 G, UID/QD
     Route: 042
     Dates: start: 20110201, end: 20110202
  58. VICCILLIN                          /00000502/ [Concomitant]
     Dosage: 2 G, UID/QD
     Route: 042
     Dates: start: 20110201, end: 20110202
  59. VANCOMYCIN                         /00314402/ [Concomitant]
     Dosage: 0.5 G, UID/QD
     Route: 042
     Dates: start: 20110201, end: 20110202
  60. OMEPRAL                            /00661202/ [Concomitant]
     Dosage: 60 MG, UNKNOWN/D
     Route: 042
     Dates: start: 20110201, end: 20110201
  61. OMEPRAL                            /00661202/ [Concomitant]
     Dosage: 40 MG, UID/QD
     Route: 042
     Dates: start: 20110202, end: 20110203
  62. OMEPRAL                            /00661202/ [Concomitant]
     Dosage: 20 MG, BID
     Route: 041
     Dates: start: 20110206, end: 20110211
  63. VENOGLOBULIN-IH [Concomitant]
     Dosage: 5 G, UID/QD
     Route: 042
     Dates: start: 20110201, end: 20110203
  64. VENOGLOBULIN-IH [Concomitant]
     Dosage: 5 G, UID/QD
     Route: 041
     Dates: start: 20110209, end: 20110210
  65. ANTITHROMBIN III HUMAN [Concomitant]
     Dosage: 1500 IU, UID/QD
     Route: 042
     Dates: start: 20110201, end: 20110202
  66. ANTITHROMBIN III HUMAN [Concomitant]
     Dosage: 1500 IU, UID/QD
     Route: 042
     Dates: start: 20110204, end: 20110204
  67. ANTITHROMBIN III HUMAN [Concomitant]
     Dosage: 1500 IU, UID/QD
     Route: 041
     Dates: start: 20110208, end: 20110209
  68. FENTANYL                           /00174602/ [Concomitant]
     Dosage: 0.2 MG, UID/QD
     Route: 042
     Dates: start: 20110202, end: 20110202
  69. FENTANYL                           /00174602/ [Concomitant]
     Dosage: 0.3 MG, UID/QD
     Route: 041
     Dates: start: 20110206, end: 20110206
  70. PHYSIO [Concomitant]
     Dosage: 500 ML, BID
     Route: 041
     Dates: start: 20110204, end: 20110204
  71. PHYSIO [Concomitant]
     Dosage: 500 ML, TID
     Route: 041
     Dates: start: 20110205, end: 20110205
  72. PHYSIO [Concomitant]
     Dosage: 500 ML, UID/QD
     Route: 041
     Dates: start: 20110206, end: 20110206
  73. OTSUKA MV [Concomitant]
     Dosage: UNK
     Route: 041
     Dates: start: 20110204, end: 20110209
  74. OTSUKA MV [Concomitant]
     Dosage: UNK
     Route: 041
     Dates: start: 20110210, end: 20110210
  75. OTSUKA MV [Concomitant]
     Dosage: UNK
     Route: 041
     Dates: start: 20110211, end: 20110211
  76. NEOLAMIN MULTI V [Concomitant]
     Dosage: UNK
     Route: 041
     Dates: start: 20110204, end: 20110207
  77. LASIX                              /00032601/ [Concomitant]
     Indication: URINE OUTPUT DECREASED
     Dosage: 10 MG, UID/QD
     Route: 042
     Dates: start: 20110204, end: 20110204
  78. LASIX                              /00032601/ [Concomitant]
     Dosage: 20 MG, UID/QD
     Route: 041
     Dates: start: 20110208, end: 20110208
  79. LASIX                              /00032601/ [Concomitant]
     Dosage: 20 MG, UID/QD
     Route: 042
     Dates: start: 20110210, end: 20110210
  80. PERDIPINE [Concomitant]
     Dosage: 10 MG, UID/QD
     Route: 041
     Dates: start: 20110204, end: 20110204
  81. ROPION [Concomitant]
     Indication: ABDOMINAL PAIN
     Dosage: 50 MG, UID/QD
     Route: 041
     Dates: start: 20110205, end: 20110205
  82. BUSCOPAN [Concomitant]
     Indication: ABDOMINAL PAIN
     Dosage: 20 MG, UID/QD
     Route: 041
     Dates: start: 20110205, end: 20110205
  83. CALONAL [Concomitant]
     Indication: ABDOMINAL PAIN
     Dosage: 1 DF, UID/QD
     Route: 048
     Dates: start: 20110205, end: 20110205
  84. PENTAGIN                           /00052102/ [Concomitant]
     Dosage: 15 MG, UID/QD
     Route: 041
     Dates: start: 20110205, end: 20110206
  85. AMINOTRIPA 1 [Concomitant]
     Dosage: 850 ML, UID/QD
     Route: 041
     Dates: start: 20110206, end: 20110206
  86. AMINOTRIPA 1 [Concomitant]
     Dosage: 850 ML, BID
     Route: 041
     Dates: start: 20110207, end: 20110209
  87. ELEMENMIC [Concomitant]
     Dosage: 2 ML, UID/QD
     Route: 041
     Dates: start: 20110206, end: 20110209
  88. ELEMENMIC [Concomitant]
     Dosage: 2 ML, BID
     Route: 041
     Dates: start: 20110210, end: 20110210
  89. ELEMENMIC [Concomitant]
     Dosage: 2 ML, UID/QD
     Route: 041
     Dates: start: 20110211, end: 20110211
  90. PRIMPERAN [Concomitant]
     Dosage: 10 MG, UID/QD
     Route: 042
     Dates: start: 20110207, end: 20110207
  91. FIRSTCIN [Concomitant]
     Dosage: 1 G, BID
     Route: 041
     Dates: start: 20110207, end: 20110210
  92. FIRSTCIN [Concomitant]
     Dosage: 1 G, UID/QD
     Route: 041
     Dates: start: 20110211, end: 20110211
  93. ELASPOL [Concomitant]
     Dosage: 300 MG, UID/QD
     Route: 041
     Dates: start: 20110209, end: 20110209
  94. ELASPOL [Concomitant]
     Dosage: 400 MG, UNKNOWN/D
     Route: 041
     Dates: start: 20110210, end: 20110210
  95. ELASPOL [Concomitant]
     Dosage: 100 MG, UID/QD
     Route: 041
     Dates: start: 20110211, end: 20110211
  96. HUMULIN R [Concomitant]
     Dosage: 50 IU, UID/QD
     Route: 041
     Dates: start: 20110209, end: 20110210
  97. DORMICUM [Concomitant]
     Dosage: 110 MG, UID/QD
     Route: 042
     Dates: start: 20110209, end: 20110209
  98. DORMICUM [Concomitant]
     Dosage: 100 MG, BID
     Route: 041
     Dates: start: 20110210, end: 20110210
  99. DORMICUM [Concomitant]
     Dosage: 100 MG, UID/QD
     Route: 041
     Dates: start: 20110211, end: 20110211
  100. LEPETAN [Concomitant]
     Dosage: 1 MG, UID/QD
     Route: 042
     Dates: start: 20110209, end: 20110209
  101. LEPETAN [Concomitant]
     Dosage: 0.8 MG, BID
     Route: 041
     Dates: start: 20110210, end: 20110210
  102. LEPETAN [Concomitant]
     Dosage: 0.8 MG, UID/QD
     Route: 041
     Dates: start: 20110211, end: 20110211
  103. NOVO HEPARIN [Concomitant]
     Dosage: 10000 IU, UNKNOWN/D
     Route: 042
     Dates: start: 20110209, end: 20110209
  104. ESLAX [Concomitant]
     Dosage: 50 MG, UID/QD
     Route: 042
     Dates: start: 20110209, end: 20110209
  105. NEOPHYLLIN                         /00003701/ [Concomitant]
     Dosage: 250 MG, UID/QD
     Route: 041
     Dates: start: 20110208, end: 20110208
  106. SUBLOOD-BSG [Concomitant]
     Dosage: 40400 ML, UNKNOWN/D
     Route: 042
     Dates: start: 20110209, end: 20110209
  107. SUBLOOD-BSG [Concomitant]
     Dosage: 20200 ML, UID/QD
     Route: 065
     Dates: start: 20110210, end: 20110211
  108. NAFAMOSTAT                         /00903002/ [Concomitant]
     Dosage: 1000 MG, UNKNOWN/D
     Route: 042
     Dates: start: 20110209, end: 20110209
  109. NAFAMOSTAT                         /00903002/ [Concomitant]
     Dosage: 500 MG, UID/QD
     Dates: start: 20110211, end: 20110211
  110. TEICOPLANIN [Concomitant]
     Dosage: 400 MG, UID/QD
     Route: 041
     Dates: start: 20110209, end: 20110210
  111. HICALIQ [Concomitant]
     Dosage: 500 ML, BID
     Route: 041
     Dates: start: 20110210, end: 20110210
  112. HICALIQ [Concomitant]
     Dosage: 500 ML, UID/QD
     Route: 041
     Dates: start: 20110211, end: 20110211
  113. AMIPAREN [Concomitant]
     Dosage: 300 ML, BID
     Route: 041
     Dates: start: 20110210, end: 20110210
  114. AMIPAREN [Concomitant]
     Dosage: 300 ML, UID/QD
     Route: 041
     Dates: start: 20110211, end: 20110211
  115. SODIUM CHLORIDE [Concomitant]
     Dosage: 40 ML, BID
     Route: 041
     Dates: start: 20110210, end: 20110210

REACTIONS (6)
  - Drug ineffective [Unknown]
  - Intentional drug misuse [Unknown]
  - Transplant rejection [Unknown]
  - Cerebral haemorrhage [Fatal]
  - Thrombotic microangiopathy [Unknown]
  - Refractoriness to platelet transfusion [Unknown]
